FAERS Safety Report 5648743-6 (Version None)
Quarter: 2008Q1

REPORT INFORMATION
  Report Type: 
  Country: None (occurrence: None)
  Receive Date: 20080304
  Receipt Date: 20080219
  Transmission Date: 20080703
  Serious: Yes (Hospitalization)
  Sender: FDA-Public Use
  Company Number: RU-AMGEN-UK259835

PATIENT
  Sex: Female

DRUGS (4)
  1. PANITUMUMAB [Suspect]
     Indication: COLORECTAL CANCER
     Route: 042
     Dates: start: 20071024
  2. FLUOROURACIL [Suspect]
  3. IRINOTECAN [Suspect]
  4. LEUCOVORIN CALCIUM [Suspect]

REACTIONS (1)
  - NEUTROPENIA [None]
